FAERS Safety Report 6230356-9 (Version None)
Quarter: 2009Q2

REPORT INFORMATION
  Report Type: 
  Country: None (occurrence: None)
  Receive Date: 20090611
  Receipt Date: 20090528
  Transmission Date: 20091009
  Serious: Yes (Hospitalization)
  Sender: FDA-Public Use
  Company Number: DSM-2009-00744

PATIENT
  Age: 71 Year
  Sex: Female

DRUGS (4)
  1. ALTEIS DUO [Suspect]
     Indication: CARDIOMYOPATHY
     Dosage: ONCE, ORAL
     Route: 048
     Dates: start: 20090429, end: 20090429
  2. ISOPTIN [Concomitant]
  3. FENOFIBRATE [Concomitant]
  4. IMOVANE (ZOPICLONE) [Concomitant]

REACTIONS (2)
  - ACIDOSIS [None]
  - ANAPHYLACTIC SHOCK [None]
